FAERS Safety Report 20713228 (Version 1)
Quarter: 2022Q2

REPORT INFORMATION
  Report Type: Spontaneous
  Country: DE (occurrence: DE)
  Receive Date: 20220415
  Receipt Date: 20220415
  Transmission Date: 20220720
  Serious: Yes (Other)
  Sender: FDA-Public Use
  Company Number: DE-NOVARTISPH-NVSC2022DE083643

PATIENT
  Age: 84 Year
  Sex: Male
  Weight: 75 kg

DRUGS (13)
  1. TELMISARTAN [Suspect]
     Active Substance: TELMISARTAN
     Indication: Product used for unknown indication
     Dosage: 1 DOSAGE FORM (1 TABLET/S (MIX-UP), LONG-TERM MEDICATION)
     Route: 048
     Dates: start: 20220313, end: 20220313
  2. TORSEMIDE [Suspect]
     Active Substance: TORSEMIDE
     Indication: Product used for unknown indication
     Dosage: 1 DOSAGE FORM (1 TABLET/S (MIX-UP), LONG-TERM MEDICATION)
     Route: 048
     Dates: start: 20220313, end: 20220313
  3. BISOPROLOL [Suspect]
     Active Substance: BISOPROLOL
     Indication: Product used for unknown indication
     Dosage: 0.5 TABLET/S (MIX-UP), LONG-TERM MEDICATION
     Route: 048
     Dates: start: 20220313, end: 20220313
  4. CHOLECALCIFEROL [Suspect]
     Active Substance: CHOLECALCIFEROL
     Indication: Product used for unknown indication
     Dosage: UNK (1 ROUND (MIX-UP), LONG-TERM MEDICATION)
     Route: 048
     Dates: start: 20220313, end: 20220313
  5. MIRTAZAPINE [Concomitant]
     Active Substance: MIRTAZAPINE
     Indication: Product used for unknown indication
     Dosage: 1 DOSAGE FORM (0-0-1 TABLET/S (LONG-TERM MEDICATION), EXPOSURE CANNOT BE ASSESSED)
     Route: 048
  6. NITROGLYCERIN [Concomitant]
     Active Substance: NITROGLYCERIN
     Indication: Product used for unknown indication
     Dosage: UNK (UNKNOWN AMOUNT OF TABLET/S (IF NEEDED), ORAL, EXPOSURE CANNOT BE ASSESSED)
     Route: 048
  7. SIMVASTATIN [Concomitant]
     Active Substance: SIMVASTATIN
     Indication: Product used for unknown indication
     Dosage: 1 DOSAGE FORM (1 TABLET/S, LONG-TERM MEDICATION, EXPOSURE CANNOT BE ASSESSED)
     Route: 048
  8. AMLODIPINE [Concomitant]
     Active Substance: AMLODIPINE BESYLATE
     Indication: Product used for unknown indication
     Dosage: 0.5 DOSAGE FORM (0.5 TABLET, LONG-TERM MEDICATION, EXPOSURE CANNOT BE ASSESSED)
     Route: 048
  9. CITALOPRAM [Concomitant]
     Active Substance: CITALOPRAM HYDROBROMIDE
     Indication: Product used for unknown indication
     Dosage: 1 DOSAGE FORM (1 TABLET, LONG-TERM MEDICATION, EXPOSURE CANNOT BE ASSESSED)
     Route: 048
  10. PAPAVERINE [Concomitant]
     Active Substance: PAPAVERINE
     Indication: Product used for unknown indication
     Dosage: 30 MG (30 MILLIGRAM, LONG-TERM MEDICATION, EXPOSURE CANNOT BE ASSESSED)
     Route: 048
  11. SODIUM BICARBONATE [Concomitant]
     Active Substance: SODIUM BICARBONATE
     Indication: Product used for unknown indication
     Dosage: 1 G (1 GRAM, LONG-TERM MEDICATION, EXPOSURE CANNOT BE ASSESSED)
     Route: 048
  12. TAMSULOSIN [Concomitant]
     Active Substance: TAMSULOSIN
     Indication: Product used for unknown indication
     Dosage: 1 DOSAGE FORM (1 TABLET, LONG-TERM MEDICATION, EXPOSURE CANNOT BE ASSESSED)
     Route: 048
  13. ALLOPURINOL [Concomitant]
     Active Substance: ALLOPURINOL
     Indication: Product used for unknown indication
     Dosage: 1 DOSAGE FORM (1 TABLET, LONG-TERM MEDICATION, EXPOSURE CANNOT BE ASSESSED)
     Route: 048

REACTIONS (3)
  - Bradycardia [Unknown]
  - Wrong product administered [Unknown]
  - Systolic hypertension [Unknown]

NARRATIVE: CASE EVENT DATE: 20220313
